FAERS Safety Report 5636520-1 (Version None)
Quarter: 2008Q1

REPORT INFORMATION
  Report Type: 
  Country: None (occurrence: None)
  Receive Date: 20080219
  Receipt Date: 20080219
  Transmission Date: 20080703
  Serious: Yes (Other)
  Sender: FDA-Public Use
  Company Number: None

PATIENT
  Age: 58 Year
  Sex: Female
  Weight: 73.9363 kg

DRUGS (1)
  1. CHANTIX [Suspect]
     Indication: SMOKING CESSATION THERAPY
     Dosage: 1 DAILEY PO
     Route: 048
     Dates: start: 20080101, end: 20080130

REACTIONS (5)
  - ANXIETY [None]
  - CRYING [None]
  - DEPRESSION [None]
  - NERVOUSNESS [None]
  - SOCIAL AVOIDANT BEHAVIOUR [None]
